FAERS Safety Report 18296871 (Version 2)
Quarter: 2020Q3

REPORT INFORMATION
  Report Type: Report from Study
  Country: JP (occurrence: JP)
  Receive Date: 20200922
  Receipt Date: 20200930
  Transmission Date: 20201103
  Serious: Yes (Life-Threatening)
  Sender: FDA-Public Use
  Company Number: JP-JNJFOC-20200925878

PATIENT
  Age: 73 Year
  Sex: Male
  Weight: 72 kg

DRUGS (29)
  1. AMLODIPINE [Concomitant]
     Active Substance: AMLODIPINE BESYLATE
     Indication: HYPERTENSION
     Route: 048
     Dates: start: 2014
  2. MAGCOROL P [Concomitant]
     Active Substance: MAGNESIUM CITRATE
     Indication: RADICAL PROSTATECTOMY
     Route: 048
     Dates: start: 20200909, end: 20200909
  3. FENTANYL. [Concomitant]
     Active Substance: FENTANYL
     Indication: RADICAL PROSTATECTOMY
     Route: 042
     Dates: start: 20200910, end: 20200910
  4. ESLAX [Concomitant]
     Active Substance: ROCURONIUM BROMIDE
     Indication: RADICAL PROSTATECTOMY
     Route: 042
     Dates: start: 20200910, end: 20200910
  5. BRIDION [Concomitant]
     Active Substance: SUGAMMADEX
     Indication: RADICAL PROSTATECTOMY
     Route: 042
     Dates: start: 20200910, end: 20200910
  6. SILODOSIN. [Concomitant]
     Active Substance: SILODOSIN
     Indication: PROSTATE CANCER METASTATIC
     Route: 048
     Dates: start: 2019
  7. PHYSIO 140 [Concomitant]
     Active Substance: CALCIUM GLUCONATE\DEXTROSE\MAGNESIUM CHLORIDE\POTASSIUM CHLORIDE\SODIUM ACETATE\SODIUM CHLORIDE\TRISODIUM CITRATE DIHYDRATE
     Indication: RADICAL PROSTATECTOMY
     Route: 042
     Dates: start: 20200910, end: 20200910
  8. LEVOBUPIVACAINE HYDROCHLORIDE [Concomitant]
     Active Substance: LEVOBUPIVACAINE HYDROCHLORIDE
     Indication: RADICAL PROSTATECTOMY
     Route: 061
     Dates: start: 20200910, end: 20200910
  9. ROPION [Concomitant]
     Active Substance: FLURBIPROFEN AXETIL
     Indication: PAIN
     Route: 042
     Dates: start: 20200910, end: 20200910
  10. TAKECAB [Concomitant]
     Active Substance: VONOPRAZAN FUMARATE
     Indication: GASTROINTESTINAL DISORDER THERAPY
     Route: 048
     Dates: start: 2019
  11. SOLDEM 3A [Concomitant]
     Active Substance: CARBOHYDRATES\POTASSIUM CHLORIDE\SODIUM CHLORIDE\SODIUM LACTATE
     Route: 042
     Dates: start: 20200911, end: 20200911
  12. NEOSYNESIN                         /00116302/ [Concomitant]
     Indication: RADICAL PROSTATECTOMY
     Route: 042
     Dates: start: 20200910, end: 20200910
  13. EPHEDRINE. [Concomitant]
     Active Substance: EPHEDRINE
     Indication: RADICAL PROSTATECTOMY
     Route: 042
     Dates: start: 20200910, end: 20200910
  14. APALUTAMIDE [Suspect]
     Active Substance: APALUTAMIDE
     Indication: PROSTATE CANCER METASTATIC
     Route: 048
     Dates: start: 20200325, end: 20200909
  15. SENNOSIDE                          /00571901/ [Concomitant]
     Active Substance: SENNOSIDES A AND B
     Indication: RADICAL PROSTATECTOMY
     Route: 048
     Dates: start: 20200909, end: 20200909
  16. CEFAZOLIN [Concomitant]
     Active Substance: CEFAZOLIN
     Indication: RADICAL PROSTATECTOMY
     Route: 042
     Dates: start: 20200910, end: 20200910
  17. DIPRIVAN [Concomitant]
     Active Substance: PROPOFOL
     Indication: RADICAL PROSTATECTOMY
     Route: 042
     Dates: start: 20200910, end: 20200910
  18. ACELIO [Concomitant]
     Active Substance: ACETAMINOPHEN
     Indication: PAIN
     Route: 042
     Dates: start: 20200910, end: 20200911
  19. VALHYDIO [Concomitant]
     Active Substance: HYDROCHLOROTHIAZIDE\VALSARTAN
     Indication: HYPERTENSION
     Dosage: 80/6.25 MILLIGRAM
     Route: 048
     Dates: start: 2014
  20. DESFLURANE. [Concomitant]
     Active Substance: DESFLURANE
     Indication: RADICAL PROSTATECTOMY
     Dates: start: 20200910, end: 20200910
  21. LIDOCAINE. [Concomitant]
     Active Substance: LIDOCAINE
     Indication: RADICAL PROSTATECTOMY
     Route: 042
     Dates: start: 20200910, end: 20200910
  22. SOLACET D [Concomitant]
     Indication: RADICAL PROSTATECTOMY
     Route: 042
     Dates: start: 20200909, end: 20200909
  23. BFLUID [Concomitant]
     Active Substance: AMINO ACIDS\DEXTROSE\ELECTROLYTES NOS\VITAMINS
     Indication: RADICAL PROSTATECTOMY
     Route: 042
     Dates: start: 20200910, end: 20200910
  24. ULTIVA [Concomitant]
     Active Substance: REMIFENTANIL HYDROCHLORIDE
     Indication: RADICAL PROSTATECTOMY
     Route: 042
     Dates: start: 20200910, end: 20200910
  25. DEXMEDETOMIDINE. [Concomitant]
     Active Substance: DEXMEDETOMIDINE
     Indication: RADICAL PROSTATECTOMY
     Route: 042
     Dates: start: 20200910, end: 20200911
  26. PRIMPERAN [Concomitant]
     Active Substance: METOCLOPRAMIDE HYDROCHLORIDE
     Indication: VOMITING
     Route: 042
     Dates: start: 20200910, end: 20200910
  27. SOLACET D [Concomitant]
     Route: 042
     Dates: start: 20200910, end: 20200911
  28. SOLDEM 3A [Concomitant]
     Active Substance: CARBOHYDRATES\POTASSIUM CHLORIDE\SODIUM CHLORIDE\SODIUM LACTATE
     Indication: RADICAL PROSTATECTOMY
     Route: 042
     Dates: start: 20200910, end: 20200910
  29. APALUTAMIDE [Suspect]
     Active Substance: APALUTAMIDE
     Route: 048
     Dates: start: 20200918

REACTIONS (1)
  - Pulmonary embolism [Recovered/Resolved]

NARRATIVE: CASE EVENT DATE: 20200911
